FAERS Safety Report 5454029-5 (Version None)
Quarter: 2007Q3

REPORT INFORMATION
  Report Type: 
  Country: None (occurrence: None)
  Receive Date: 20070917
  Receipt Date: 20070709
  Transmission Date: 20080115
  Serious: Yes (Other)
  Sender: FDA-Public Use
  Company Number: US-ASTRAZENECA-2006UW05344

PATIENT
  Age: 48 Year
  Sex: Male

DRUGS (5)
  1. SEROQUEL [Suspect]
     Route: 048
  2. ZYPREXA [Suspect]
     Indication: DEPRESSION
     Dates: start: 19970101, end: 20050101
  3. ZYPREXA [Suspect]
     Indication: SCHIZOPHRENIA
     Dates: start: 19970101, end: 20050101
  4. RISPERDAL [Suspect]
     Indication: DEPRESSION
     Dosage: 2 MG TO 4 MG
     Dates: start: 20050101, end: 20060101
  5. RISPERDAL [Suspect]
     Indication: SCHIZOPHRENIA
     Dosage: 2 MG TO 4 MG
     Dates: start: 20050101, end: 20060101

REACTIONS (2)
  - DIABETES MELLITUS [None]
  - PANCREATITIS [None]
